FAERS Safety Report 16201689 (Version 2)
Quarter: 2019Q2

REPORT INFORMATION
  Report Type: Spontaneous
  Country: US (occurrence: US)
  Receive Date: 20190416
  Receipt Date: 20190527
  Transmission Date: 20190711
  Serious: No
  Sender: FDA-Public Use
  Company Number: PHEH2019US015908

PATIENT
  Age: 69 Year
  Sex: Male
  Weight: 117.1 kg

DRUGS (2)
  1. COSENTYX [Suspect]
     Active Substance: SECUKINUMAB
     Dosage: 300 MG, QMO
     Route: 058
  2. COSENTYX [Suspect]
     Active Substance: SECUKINUMAB
     Indication: PSORIATIC ARTHROPATHY
     Dosage: 300 MG, UNK
     Route: 058
     Dates: start: 201903

REACTIONS (3)
  - Lip dry [Recovering/Resolving]
  - Lip pain [Recovering/Resolving]
  - Chapped lips [Recovering/Resolving]

NARRATIVE: CASE EVENT DATE: 20190404
